FAERS Safety Report 12159229 (Version 3)
Quarter: 2017Q2

REPORT INFORMATION
  Report Type: Spontaneous
  Country: JP (occurrence: JP)
  Receive Date: 20160308
  Receipt Date: 20170515
  Transmission Date: 20170829
  Serious: Yes (Death)
  Sender: FDA-Public Use
  Company Number: JP-JNJFOC-20160304368

PATIENT
  Sex: Male

DRUGS (1)
  1. ZYTIGA [Suspect]
     Active Substance: ABIRATERONE ACETATE
     Indication: PROSTATE CANCER
     Route: 048

REACTIONS (11)
  - Prostatic specific antigen increased [Unknown]
  - Blood potassium decreased [Unknown]
  - Death [Fatal]
  - Decreased appetite [Unknown]
  - Faeces soft [Unknown]
  - Condition aggravated [Unknown]
  - Adverse event [Unknown]
  - Hepatic function abnormal [Unknown]
  - Platelet count decreased [Unknown]
  - Dysphagia [Unknown]
  - Respiratory disorder [Unknown]
